FAERS Safety Report 13967552 (Version 1)
Quarter: 2017Q3

REPORT INFORMATION
  Report Type: Report from Study
  Country: HU (occurrence: HU)
  Receive Date: 20170914
  Receipt Date: 20170914
  Transmission Date: 20171128
  Serious: Yes (Other)
  Sender: FDA-Public Use
  Company Number: HU-ROCHE-1919104

PATIENT

DRUGS (2)
  1. SODIUM HEPARIN [Concomitant]
     Active Substance: HEPARIN SODIUM
     Indication: PELVIC VENOUS THROMBOSIS
     Dosage: A BOLUS OF 5000 IU AT A RATE OF 500-1000 IU/H USING AN INFUSION PUMP, ADMINISTERED IN A PERIPHERAL V
     Route: 042
  2. ALTEPLASE. [Suspect]
     Active Substance: ALTEPLASE
     Indication: PELVIC VENOUS THROMBOSIS
     Dosage: A BOLUS OF 20 MG WAS ADMINISTERED AS INITIAL THERAPY, AT A RATE OF 2-3 MG/H USING AN INFUSION PUMP (
     Route: 050

REACTIONS (5)
  - Haematochezia [Unknown]
  - Pulmonary embolism [Unknown]
  - Haematuria [Unknown]
  - Catheter site haematoma [Unknown]
  - Off label use [Unknown]
